FAERS Safety Report 4314447-5 (Version None)
Quarter: 2004Q1

REPORT INFORMATION
  Report Type: 
  Country: None (occurrence: None)
  Receive Date: 20040308
  Receipt Date: 20040302
  Transmission Date: 20041129
  Serious: Yes (Hospitalization)
  Sender: FDA-Public Use
  Company Number: 2004-03-0051

PATIENT
  Age: 50 Year
  Sex: Female

DRUGS (1)
  1. NAQUA [Suspect]
     Indication: HYPERTENSION
     Dosage: 2 MG QD ORAL
     Route: 048
     Dates: start: 20040105, end: 20040115

REACTIONS (3)
  - ACUTE LEUKAEMIA [None]
  - HAEMATURIA [None]
  - PLATELET COUNT DECREASED [None]
